FAERS Safety Report 13707683 (Version 1)
Quarter: 2017Q2

REPORT INFORMATION
  Report Type: Spontaneous
  Country: GB (occurrence: GB)
  Receive Date: 20170630
  Receipt Date: 20170630
  Transmission Date: 20170830
  Serious: Yes (Hospitalization)
  Sender: FDA-Public Use
  Company Number: GB-PFIZER INC-2017282795

PATIENT
  Age: 66 Year
  Sex: Female
  Weight: 70 kg

DRUGS (36)
  1. FENTANYL. [Concomitant]
     Active Substance: FENTANYL
     Dosage: 1 DF, 72 HOURS
     Route: 062
     Dates: start: 20170207
  2. MACROGOL [Concomitant]
     Active Substance: POLYETHYLENE GLYCOLS
     Dosage: 1DF, 2X/DAY
     Dates: start: 20160909, end: 20170526
  3. METOCLOPRAMIDE. [Concomitant]
     Active Substance: METOCLOPRAMIDE
     Dosage: 10 MG, 3X/DAY
     Dates: start: 20170120
  4. PHOSPHATE ION [Concomitant]
     Active Substance: PHOSPHATE ION
     Dosage: AT NIGHT.
     Dates: start: 20170207
  5. TIOTROPIUM [Concomitant]
     Active Substance: TIOTROPIUM
     Dosage: 1DF, 1X/DAY (MORNING)
     Route: 055
     Dates: start: 20150522
  6. LACRI-LUBE [Concomitant]
     Dosage: APPLICATION TO BOTH EYES AT BEDTIME.
     Route: 050
     Dates: start: 20170208
  7. SIRDUPLA [Concomitant]
     Active Substance: FLUTICASONE PROPIONATE\SALMETEROL XINAFOATE
     Dosage: INHALE PUFFS ^SLOW AND STEADY^
     Route: 055
     Dates: start: 20151109
  8. BISOPROLOL [Concomitant]
     Active Substance: BISOPROLOL
     Dosage: 1 DF, 1X/DAY
     Dates: start: 20161102
  9. CONOTRANE /01805801/ [Concomitant]
     Dosage: UNK, 2X/DAY
     Dates: start: 20161102, end: 20170526
  10. DAKTACORT [Concomitant]
     Active Substance: HYDROCORTISONE\MICONAZOLE NITRATE
     Dosage: 1DF, 2X/DAY
     Dates: start: 20170524
  11. LIDOCAINE. [Concomitant]
     Active Substance: LIDOCAINE
     Dosage: FOR UP TO 12 HOURS WITHIN 24 HOURS.
     Dates: start: 20161102
  12. NOVOMIX [Concomitant]
     Active Substance: INSULIN ASPART
     Dosage: USE AS DIRECTED.
     Dates: start: 20170524
  13. LACTULOSE. [Concomitant]
     Active Substance: LACTULOSE
     Dosage: UNK, 2X/DAY
     Dates: start: 20170330
  14. OXYCODONE HYDROCHLORIDE. [Concomitant]
     Active Substance: OXYCODONE HYDROCHLORIDE
     Dosage: 3.75MG THREE TIMES A DAY (2.5MG AND 1.25MG)
     Dates: start: 20160909, end: 20170524
  15. BUMETANIDE. [Concomitant]
     Active Substance: BUMETANIDE
     Dosage: 4 DF, 2X/DAY (IN THE MORNING AND AT NOON.)
     Dates: start: 20170120
  16. CLINDAMYCIN HCL [Suspect]
     Active Substance: CLINDAMYCIN HYDROCHLORIDE
     Dosage: UNK
     Dates: start: 20161116
  17. CARBOMERUM 980 [Concomitant]
     Dosage: 2GTTS, 4X/DAY (1DROP TO BOTH EYES)
     Dates: start: 20170208
  18. CHLORPHENAMINE [Concomitant]
     Active Substance: CHLORPHENIRAMINE MALEATE
     Dosage: 8MG, EVERY 4-6 HOURS
     Dates: start: 20170120
  19. DOXAZOSIN [Concomitant]
     Active Substance: DOXAZOSIN\DOXAZOSIN MESYLATE
     Dosage: UNK, 2X/DAY
     Dates: start: 20170207
  20. GABAPENTIN. [Concomitant]
     Active Substance: GABAPENTIN
     Dosage: 2 DF, 2X/DAY
     Dates: start: 20170207
  21. GLYCEROL [Concomitant]
     Active Substance: GLYCERIN
     Dosage: AT NIGHT
     Dates: start: 20170207
  22. HYPROMELLOSE [Concomitant]
     Active Substance: HYPROMELLOSES
     Dosage: 1 DF, 3X/DAY
     Dates: start: 20150522
  23. LANSOPRAZOLE. [Concomitant]
     Active Substance: LANSOPRAZOLE
     Dosage: 1 DF, 1X/DAY
     Dates: start: 20170120
  24. MONTELUKAST [Concomitant]
     Active Substance: MONTELUKAST SODIUM
     Dosage: 2 DF, 1X/DAY
     Dates: start: 20170207
  25. SEVELAMER [Concomitant]
     Active Substance: SEVELAMER
     Dosage: UNK, 1X/DAY
     Dates: start: 20170207
  26. AMIODARONE [Concomitant]
     Active Substance: AMIODARONE
     Dosage: 1 DF, 1X/DAY (EACH MORNING)
     Dates: start: 20150522
  27. ASPIRIN (E.C.) [Concomitant]
     Active Substance: ASPIRIN
     Dosage: 1 DF, 1X/DAY (EACH MORNING.)
     Dates: start: 20150522
  28. DICLOFENACDIETHYLAMMONIUM [Concomitant]
     Dosage: 1 DF, 3X/DAY
     Dates: start: 20160909
  29. PARACETAMOL [Concomitant]
     Active Substance: ACETAMINOPHEN
     Dosage: 2 DF, 4X/DAY
     Dates: start: 20170120
  30. SALBUTAMOL [Concomitant]
     Active Substance: ALBUTEROL
     Dosage: 4 TIMES A DAY.
     Route: 055
     Dates: start: 20150522
  31. AMLODIPINE [Concomitant]
     Active Substance: AMLODIPINE BESYLATE
     Dosage: 1DF, 1X/DAY
     Dates: start: 20170207, end: 20170330
  32. DERMOL /01330701/ [Concomitant]
     Dosage: USE AS DIRECTED
     Dates: start: 20161102
  33. DIAZEPAM. [Concomitant]
     Active Substance: DIAZEPAM
     Dosage: 0.5 DF, DAILY
     Dates: start: 20170207
  34. E45 [Concomitant]
     Active Substance: LANOLIN\LIGHT MINERAL OIL\PARAFFIN
     Dosage: UNK
     Dates: start: 20150522
  35. HYDRALAZINE [Concomitant]
     Active Substance: HYDRALAZINE HYDROCHLORIDE
     Dosage: 1 DF, 2X/DAY
     Dates: start: 20170207
  36. SENNA /00142201/ [Concomitant]
     Active Substance: SENNA LEAF
     Dosage: 30 MG, 1X.DAY (2 DROPS AT NIGHT)
     Dates: start: 20170120, end: 20170330

REACTIONS (2)
  - Dyspnoea [Unknown]
  - Hypersensitivity [Unknown]

NARRATIVE: CASE EVENT DATE: 20161116
